FAERS Safety Report 4401066-5 (Version None)
Quarter: 2004Q3

REPORT INFORMATION
  Report Type: 
  Country: None (occurrence: None)
  Receive Date: 20040907
  Receipt Date: 20031014
  Transmission Date: 20050211
  Serious: No
  Sender: FDA-Public Use
  Company Number: US-BRISTOL-MYERS SQUIBB COMPANY-12410817

PATIENT
  Age: 62 Year
  Sex: Female
  Weight: 61 kg

DRUGS (3)
  1. COUMADIN [Suspect]
     Indication: PULMONARY EMBOLISM
     Dosage: TAKES 1 AND ONE-HALF TABLETS, EACH TABLET 5MG
     Route: 048
  2. LOVENOX [Concomitant]
     Indication: PULMONARY EMBOLISM
     Dates: start: 20030901, end: 20030101
  3. CYTOMEL [Concomitant]
     Indication: HYPOTHYROIDISM

REACTIONS (1)
  - INTERNATIONAL NORMALISED RATIO INCREASED [None]
